FAERS Safety Report 17336166 (Version 1)
Quarter: 2020Q1

REPORT INFORMATION
  Report Type: Spontaneous
  Country: GB (occurrence: GB)
  Receive Date: 20200128
  Receipt Date: 20200128
  Transmission Date: 20200409
  Serious: Yes (Other)
  Sender: FDA-Public Use
  Company Number: GB-MYLANLABS-2020M1009230

PATIENT
  Age: 61 Year
  Sex: Female
  Weight: 52 kg

DRUGS (1)
  1. IRBESARTAN. [Suspect]
     Active Substance: IRBESARTAN
     Indication: HYPERTENSION
     Dosage: 300 MILLIGRAM
     Route: 048
     Dates: start: 20180416, end: 20191031

REACTIONS (2)
  - Suicidal ideation [Recovered/Resolved]
  - Depressed mood [Recovering/Resolving]

NARRATIVE: CASE EVENT DATE: 20180416
